FAERS Safety Report 9027183 (Version 1)
Quarter: 2013Q1

REPORT INFORMATION
  Report Type: Spontaneous
  Country: IT (occurrence: IT)
  Receive Date: 20130123
  Receipt Date: 20130123
  Transmission Date: 20140127
  Serious: Yes (Hospitalization, Other)
  Sender: FDA-Public Use
  Company Number: IT-TEVA-381704ISR

PATIENT
  Age: 14 Year
  Sex: Male

DRUGS (3)
  1. CISPLATIN [Suspect]
     Indication: BONE SARCOMA
  2. METHOTREXATE [Suspect]
     Indication: BONE SARCOMA
     Dosage: 12.0 G/KG
  3. DOXORUBICIN [Suspect]
     Indication: BONE SARCOMA

REACTIONS (1)
  - Cutaneous tuberculosis [Recovered/Resolved]
